FAERS Safety Report 25848776 (Version 1)
Quarter: 2025Q3

REPORT INFORMATION
  Report Type: Spontaneous
  Country: EU (occurrence: EU)
  Receive Date: 20250925
  Receipt Date: 20250925
  Transmission Date: 20251020
  Serious: Yes (Other)
  Sender: MYLAN
  Company Number: EU-009507513-2327299

PATIENT
  Age: 60 Year
  Sex: Female
  Weight: 67 kg

DRUGS (8)
  1. PACLITAXEL [Suspect]
     Active Substance: PACLITAXEL
     Indication: Transitional cell carcinoma
  2. CISPLATIN [Suspect]
     Active Substance: CISPLATIN
     Indication: Transitional cell carcinoma
  3. GEMCITABINE [Suspect]
     Active Substance: GEMCITABINE
     Indication: Transitional cell carcinoma
     Dosage: 1000 MILLIGRAM/SQ. METER, 28D CYCLE (IV DAYS 1, 8, 15, 28-DAY CYCLE )
  4. BCG LIVE [Suspect]
     Active Substance: BCG LIVE
     Indication: Transitional cell carcinoma
  5. AVELUMAB [Suspect]
     Active Substance: AVELUMAB
     Indication: Transitional cell carcinoma
     Dosage: 800 MILLIGRAM, BIWEEKLY (2-WEEK CYCLE)
  6. ENFORTUMAB VEDOTIN [Suspect]
     Active Substance: ENFORTUMAB VEDOTIN
     Indication: Transitional cell carcinoma
     Dosage: 1.25 MILLIGRAM/KILOGRAM, 28D CYCLE (IV ON DAYS 1, 8, AND 15, 28 DAYS CYCLE)
  7. CARBOPLATIN [Suspect]
     Active Substance: CARBOPLATIN
     Indication: Transitional cell carcinoma
  8. MEXAZOLAM [Concomitant]
     Active Substance: MEXAZOLAM
     Indication: Analgesic therapy

REACTIONS (13)
  - Malignant neoplasm progression [Unknown]
  - Diabetes mellitus [Unknown]
  - Mucosal inflammation [Unknown]
  - Skin hyperpigmentation [Unknown]
  - Hyperglycaemia [Unknown]
  - Decreased appetite [Unknown]
  - Pruritus [Unknown]
  - Toxicity to various agents [Unknown]
  - Asthenia [Unknown]
  - Dry mouth [Unknown]
  - Dysgeusia [Unknown]
  - Rash [Unknown]
  - Therapy partial responder [Unknown]
